FAERS Safety Report 9996485 (Version 1)
Quarter: 2014Q1

REPORT INFORMATION
  Report Type: Spontaneous
  Country: US (occurrence: None)
  Receive Date: 20140310
  Receipt Date: 20140310
  Transmission Date: 20141002
  Serious: Yes (Other)
  Sender: FDA-Public Use
  Company Number: None

PATIENT
  Age: 79 Year
  Sex: Male
  Weight: 83.01 kg

DRUGS (5)
  1. GALANTAMINE [Suspect]
     Indication: PARKINSONISM
     Dosage: 1 AFTER BREAKFAST
     Route: 048
     Dates: start: 20140212, end: 20140306
  2. WARFARIN [Concomitant]
  3. MONOPRIL [Concomitant]
  4. AZILECT [Concomitant]
  5. BENZTROPINE MESYLATE [Concomitant]

REACTIONS (1)
  - International normalised ratio increased [None]
